FAERS Safety Report 5600114-4 (Version None)
Quarter: 2008Q1

REPORT INFORMATION
  Report Type: 
  Country: None (occurrence: None)
  Receive Date: 20080123
  Receipt Date: 20080115
  Transmission Date: 20080703
  Serious: Yes (Other)
  Sender: FDA-Public Use
  Company Number: B0499393A

PATIENT
  Age: 57 Year
  Sex: Female

DRUGS (2)
  1. REQUIP [Suspect]
     Indication: PARKINSON'S DISEASE
     Dosage: 2MG THREE TIMES PER DAY
     Route: 048
     Dates: start: 20070509, end: 20080108
  2. AZILECT [Concomitant]
     Indication: PARKINSON'S DISEASE
     Dosage: 1MG PER DAY
     Route: 048
     Dates: start: 20070107

REACTIONS (4)
  - HAEMORRHAGE SUBCUTANEOUS [None]
  - RASH MACULAR [None]
  - RETINAL HAEMORRHAGE [None]
  - URTICARIA [None]
